FAERS Safety Report 8575895 (Version 5)
Quarter: 2014Q3

REPORT INFORMATION
  Report Type: Report from Study
  Country: MX (occurrence: MX)
  Receive Date: 20120523
  Receipt Date: 20140901
  Transmission Date: 20150326
  Serious: Yes (Hospitalization)
  Sender: FDA-Public Use
  Company Number: PHHY2012MX042706

PATIENT
  Age: 65 Year
  Sex: Male

DRUGS (5)
  1. DIOVAN [Suspect]
     Active Substance: VALSARTAN
     Indication: HYPERTENSION
     Dosage: 2 DF (80 MG) PER DAY
     Dates: start: 20101009
  2. METFORMIN [Concomitant]
     Active Substance: METFORMIN HYDROCHLORIDE
     Indication: DIABETES MELLITUS
     Dosage: UNK UKN, UNK
     Dates: start: 20120426
  3. METFORMIN [Concomitant]
     Active Substance: METFORMIN HYDROCHLORIDE
     Dosage: 1 UKN, DAILY
     Dates: start: 201401
  4. DIOVAN [Suspect]
     Active Substance: VALSARTAN
     Dosage: 1 DF (80 MG), DAILY
     Route: 048
     Dates: end: 20120511
  5. GLIBENCLAMIDE [Concomitant]
     Active Substance: GLYBURIDE
     Indication: DIABETES MELLITUS
     Dosage: UNK UKN, UNK
     Dates: end: 20120426

REACTIONS (8)
  - Oedema peripheral [Recovered/Resolved]
  - Blood glucose increased [Recovered/Resolved]
  - Headache [Recovered/Resolved]
  - Staphylococcus test positive [Unknown]
  - Gouty arthritis [Unknown]
  - Localised infection [Recovered/Resolved]
  - Blood pressure increased [Recovered/Resolved]
  - Drug ineffective [Recovered/Resolved]

NARRATIVE: CASE EVENT DATE: 20120427
